FAERS Safety Report 24753852 (Version 1)
Quarter: 2024Q4

REPORT INFORMATION
  Report Type: Spontaneous
  Country: GB (occurrence: GB)
  Receive Date: 20241219
  Receipt Date: 20241219
  Transmission Date: 20250114
  Serious: Yes (Other)
  Sender: ALEXION PHARMACEUTICALS
  Company Number: None

PATIENT
  Age: 64 Year
  Weight: 83 kg

DRUGS (8)
  1. DAPAGLIFLOZIN [Suspect]
     Active Substance: DAPAGLIFLOZIN
     Dosage: ONE TO BE TAKEN DAILY
  2. DAPAGLIFLOZIN [Suspect]
     Active Substance: DAPAGLIFLOZIN
     Dosage: ONE TO BE TAKEN DAILY
     Route: 048
  3. DAPAGLIFLOZIN [Suspect]
     Active Substance: DAPAGLIFLOZIN
     Dosage: ONE TO BE TAKEN DAILY
  4. DAPAGLIFLOZIN [Suspect]
     Active Substance: DAPAGLIFLOZIN
     Dosage: ONE TO BE TAKEN DAILY
     Route: 048
  5. SPIKEVAX [Concomitant]
     Active Substance: CX-046684
     Dosage: 0.5 ML INTRAMUSCULAR
  6. AMOXICILLIN [Concomitant]
     Active Substance: AMOXICILLIN
     Indication: Emphysema
     Dosage: ONE TO BE TAKEN THREE TIMES A DAY FOR 5-7 DAYS IF CHEST INFECTION OCCURS
  7. CLOTRIMAZOLE [Concomitant]
     Active Substance: CLOTRIMAZOLE
     Dosage: APPLY TWICE A DAY
  8. FLUCONAZOLE [Concomitant]
     Active Substance: FLUCONAZOLE
     Dosage: ONE TO BE TAKEN IMMEDIATELY

REACTIONS (1)
  - Rectal haemorrhage [Recovered/Resolved]
